FAERS Safety Report 20833388 (Version 2)
Quarter: 2022Q2

REPORT INFORMATION
  Report Type: Report from Study
  Country: CA (occurrence: CA)
  Receive Date: 20220516
  Receipt Date: 20220630
  Transmission Date: 20220721
  Serious: Yes (Hospitalization, Other)
  Sender: FDA-Public Use
  Company Number: CA-GLAXOSMITHKLINE-CA2022075622

PATIENT

DRUGS (7)
  1. MEPOLIZUMAB [Suspect]
     Active Substance: MEPOLIZUMAB
     Indication: Asthma
     Dosage: 100 MG, Z ,  EVERY 4 WEEKS
     Route: 058
     Dates: start: 20180711
  2. ASPIRIN [Suspect]
     Active Substance: ASPIRIN
     Indication: Product used for unknown indication
     Dosage: UNK
  3. CORTEF [Concomitant]
     Active Substance: HYDROCORTISONE
     Indication: Product used for unknown indication
     Dosage: 10 MG, QD , 10 MG PO QD
     Route: 048
  4. ZENHALE [Concomitant]
     Active Substance: FORMOTEROL FUMARATE\MOMETASONE FUROATE
     Indication: Product used for unknown indication
     Dosage: 2 PUFF(S), BID
     Route: 055
  5. VENTOLIN [Concomitant]
     Active Substance: ALBUTEROL SULFATE
     Indication: Product used for unknown indication
     Dosage: UNK , 1-2 PUFFS PRN
  6. ALVESCO [Concomitant]
     Active Substance: CICLESONIDE
     Indication: Product used for unknown indication
     Dosage: UNK , 1-2 PUFFS PRN
  7. NASACORT [Concomitant]
     Active Substance: TRIAMCINOLONE ACETONIDE
     Indication: Product used for unknown indication
     Dosage: 1 PUFF(S), BID , 1 PUFF IN EACH NOSTRIL BID

REACTIONS (9)
  - Hospitalisation [Unknown]
  - Gastrointestinal haemorrhage [Unknown]
  - Bladder neoplasm [Unknown]
  - Urinary bladder polyp [Unknown]
  - Spinal fusion surgery [Unknown]
  - Pain in extremity [Unknown]
  - Neuralgia [Unknown]
  - Anaemia [Unknown]
  - Drug hypersensitivity [Unknown]
